FAERS Safety Report 6290729-5 (Version None)
Quarter: 2009Q3

REPORT INFORMATION
  Report Type: 
  Country: None (occurrence: None)
  Receive Date: 20090730
  Receipt Date: 20081009
  Transmission Date: 20100115
  Serious: No
  Sender: FDA-Public Use
  Company Number: A0744709A

PATIENT
  Sex: Male

DRUGS (1)
  1. MYLERAN [Suspect]
     Indication: DRUG USE FOR UNKNOWN INDICATION
     Route: 065

REACTIONS (2)
  - PLATELET COUNT INCREASED [None]
  - PRODUCT QUALITY ISSUE [None]
